FAERS Safety Report 5047797-8 (Version None)
Quarter: 2006Q3

REPORT INFORMATION
  Report Type: 
  Country: None (occurrence: None)
  Receive Date: 20060710
  Receipt Date: 20060710
  Transmission Date: 20061208
  Serious: Yes (Other)
  Sender: FDA-Public Use
  Company Number: None

PATIENT
  Age: 70 Year
  Sex: Male
  Weight: 77.1115 kg

DRUGS (1)
  1. CREST WHITENING EXPRESSIONS TOOT PROCTOR AND GAMBLE [Suspect]

REACTIONS (2)
  - BONE DISORDER [None]
  - PAIN IN JAW [None]
